FAERS Safety Report 4435852-2 (Version None)
Quarter: 2004Q3

REPORT INFORMATION
  Report Type: 
  Country: None (occurrence: None)
  Receive Date: 20040726
  Receipt Date: 20040422
  Transmission Date: 20050211
  Serious: No
  Sender: FDA-Public Use
  Company Number: USA040465013

PATIENT
  Age: 81 Year
  Sex: Female

DRUGS (5)
  1. FORTEO [Suspect]
     Indication: OSTEOPOROSIS
     Dosage: 20 UG DAY
     Dates: start: 20040101, end: 20040413
  2. PRILOSEC [Concomitant]
  3. ATIVAN [Concomitant]
  4. LIPITOR [Concomitant]
  5. CALCIUM [Concomitant]

REACTIONS (1)
  - RETCHING [None]
